FAERS Safety Report 13078325 (Version 1)
Quarter: 2017Q1

REPORT INFORMATION
  Report Type: Spontaneous
  Country: DE (occurrence: DE)
  Receive Date: 20170102
  Receipt Date: 20170102
  Transmission Date: 20170428
  Serious: Yes (Death)
  Sender: FDA-Public Use
  Company Number: DE-AUROBINDO-AUR-APL-2017-00048

PATIENT
  Age: 41 Year
  Sex: Female
  Weight: 81 kg

DRUGS (2)
  1. FLUOXETINE [Suspect]
     Active Substance: FLUOXETINE HYDROCHLORIDE
     Indication: PRODUCT USED FOR UNKNOWN INDICATION
     Route: 065
  2. CARBAMAZEPINE. [Suspect]
     Active Substance: CARBAMAZEPINE
     Indication: PRODUCT USED FOR UNKNOWN INDICATION
     Route: 065

REACTIONS (4)
  - Serotonin syndrome [Fatal]
  - Asphyxia [Fatal]
  - Restlessness [Fatal]
  - Death [Fatal]

NARRATIVE: CASE EVENT DATE: 20161014
